FAERS Safety Report 7395523-X (Version None)
Quarter: 2011Q2

REPORT INFORMATION
  Report Type: 
  Country: None (occurrence: None)
  Receive Date: 20110405
  Receipt Date: 20110304
  Transmission Date: 20111010
  Serious: Yes (Hospitalization, Other)
  Sender: FDA-Public Use
  Company Number: US-BAYER-201021687NA

PATIENT
  Sex: Female
  Weight: 99.773 kg

DRUGS (10)
  1. SENSIPAR [Concomitant]
  2. TORADOL [Concomitant]
     Indication: ABDOMINAL PAIN
     Dosage: UNK
     Dates: start: 20080811
  3. UNCODEABLE ^UNCLASSIFIABLE^ [Concomitant]
  4. YAZ [Suspect]
     Indication: OVARIAN CYST
  5. YAZ [Suspect]
     Indication: PREMENSTRUAL SYNDROME
  6. YAZ [Suspect]
     Indication: CONTRACEPTION
  7. CLONIDINE [Concomitant]
  8. NEURONTIN [Concomitant]
  9. YAZ [Suspect]
     Indication: ACNE
     Dosage: UNK
     Dates: start: 20070101, end: 20080301
  10. NORVASC [Concomitant]

REACTIONS (2)
  - CEREBROVASCULAR ACCIDENT [None]
  - INJURY [None]
